FAERS Safety Report 7434492-0 (Version None)
Quarter: 2011Q2

REPORT INFORMATION
  Report Type: 
  Country: None (occurrence: None)
  Receive Date: 20110425
  Receipt Date: 20110414
  Transmission Date: 20111010
  Serious: Yes (Other)
  Sender: FDA-Public Use
  Company Number: US-JNJFOC-20110407995

PATIENT
  Age: 40 Year
  Sex: Female
  Weight: 69.4 kg

DRUGS (4)
  1. MONISTAT 1 COMBINATION PACK [Suspect]
     Indication: PRODUCT USED FOR UNKNOWN INDICATION
     Route: 067
  2. MONISTAT 1 COMBINATION PACK [Suspect]
     Route: 067
  3. MONISTAT 1 COMBINATION PACK [Suspect]
     Route: 061
  4. MONISTAT 1 COMBINATION PACK [Suspect]
     Route: 061

REACTIONS (4)
  - HEADACHE [None]
  - VAGINAL MUCOSAL BLISTERING [None]
  - VULVOVAGINAL BURNING SENSATION [None]
  - NAUSEA [None]
